FAERS Safety Report 4765860-3 (Version None)
Quarter: 2005Q3

REPORT INFORMATION
  Report Type: 
  Country: None (occurrence: None)
  Receive Date: 20050906
  Receipt Date: 20050818
  Transmission Date: 20060218
  Serious: Yes (Other)
  Sender: FDA-Public Use
  Company Number: S05-NLD-03173-01

PATIENT
  Age: 36 Year
  Sex: Male

DRUGS (2)
  1. CITALOPRAM HYDROBROMIDE [Suspect]
     Dosage: 20  MG QD PO
     Route: 048
     Dates: start: 20050617
  2. METHYLPHENIDATE HCL [Concomitant]

REACTIONS (1)
  - SKIN ODOUR ABNORMAL [None]
